FAERS Safety Report 16379296 (Version 1)
Quarter: 2019Q2

REPORT INFORMATION
  Report Type: Spontaneous
  Country: ES (occurrence: ES)
  Receive Date: 20190531
  Receipt Date: 20190531
  Transmission Date: 20190711
  Serious: Yes (Hospitalization)
  Sender: FDA-Public Use
  Company Number: PHHY2019ES121930

PATIENT
  Age: 17 Year
  Sex: Female

DRUGS (4)
  1. RIZATRIPTAN BENZOATE. [Suspect]
     Active Substance: RIZATRIPTAN BENZOATE
     Indication: HEADACHE
     Dosage: 10 MG, UNK
     Route: 060
     Dates: start: 20170217, end: 20170223
  2. ALMOTRIPTAN. [Interacting]
     Active Substance: ALMOTRIPTAN
     Indication: HEADACHE
     Dosage: 12.5 MG, UNK
     Route: 048
     Dates: start: 20170223, end: 20170303
  3. NAPROXENO [Interacting]
     Active Substance: NAPROXEN
     Indication: HEADACHE
     Dosage: UNK
     Route: 048
  4. METAMIZOLE [Interacting]
     Active Substance: METAMIZOLE
     Indication: HEADACHE
     Dosage: UNK
     Route: 048

REACTIONS (3)
  - Headache [Recovering/Resolving]
  - Medication overuse headache [Recovering/Resolving]
  - Drug abuse [Recovering/Resolving]

NARRATIVE: CASE EVENT DATE: 201702
